FAERS Safety Report 25701435 (Version 2)
Quarter: 2025Q3

REPORT INFORMATION
  Report Type: Spontaneous
  Country: US (occurrence: US)
  Receive Date: 20250819
  Receipt Date: 20250819
  Transmission Date: 20251021
  Serious: Yes (Hospitalization)
  Sender: IPSEN BIOPHARMACEUTICALS, INC.
  Company Number: US-IPSEN Group, Research and Development-2025-19887

PATIENT
  Age: 49 Year
  Sex: Female
  Weight: 87.4 kg

DRUGS (25)
  1. ONIVYDE [Suspect]
     Active Substance: IRINOTECAN HYDROCHLORIDE
     Indication: Colorectal cancer metastatic
  2. ONIVYDE [Suspect]
     Active Substance: IRINOTECAN HYDROCHLORIDE
     Indication: Off label use
  3. BEVACIZUMAB [Suspect]
     Active Substance: BEVACIZUMAB
     Indication: Colorectal cancer metastatic
  4. LONSURF [Suspect]
     Active Substance: TIPIRACIL HYDROCHLORIDE\TRIFLURIDINE
     Indication: Colorectal cancer metastatic
  5. TYLENOL [Concomitant]
     Active Substance: ACETAMINOPHEN
     Dosage: 500-1000MG, EVERY 4 HOURS PRN
  6. Albuterol Sulfate HFA 108 (90 Base) MCG/ACT inhaler [Concomitant]
     Dosage: 2 PUFFS, INHALATION, EVERY 4 HOURS PRN
  7. LOMOTIL [Concomitant]
     Active Substance: ATROPINE SULFATE\DIPHENOXYLATE HYDROCHLORIDE
  8. ELIQUIS [Concomitant]
     Active Substance: APIXABAN
     Dosage: 5 MG, ORAL, 2 X DAILY
  9. ESTRACE [Concomitant]
     Active Substance: ESTRADIOL
     Dosage: 2 MG, ORAL, 1 X DAILY
  10. ALLEGRA [Concomitant]
     Active Substance: FEXOFENADINE HYDROCHLORIDE
     Dosage: 180 MG, 1 X DAILY (AM)
  11. NIVESTYM [Concomitant]
     Active Substance: FILGRASTIM-AAFI
     Dosage: 480 MCG, SUBCUTANEOUS, 1 X DAILY (PM), INJECT ON DAYS 6-10 AND 20-24. CYCLE = 28 DAYS
  12. FLUTICASONE FUROATE [Concomitant]
     Active Substance: FLUTICASONE FUROATE
     Dosage: 27.5 MCG, 2 SPRAYS, 1 X DAILY
  13. guaiFENesin-Codeine 100-10 MG/5ML soln [Concomitant]
     Dosage: 100-10MG/5 ML (10 ML, ORAL, EVERY 6 HOURS PRN)
  14. SYNTHROID [Concomitant]
     Active Substance: LEVOTHYROXINE SODIUM
     Dosage: 100 MCG, ORAL, 1 X DAILY
  15. Loperamide HCI (Imodium A-D) 2 MG cap [Concomitant]
  16. ZYPREXA [Concomitant]
     Active Substance: OLANZAPINE
     Dosage: 5 MG, ORAL, 1 X DAILY (HS)
  17. ZOFRAN [Concomitant]
     Active Substance: ONDANSETRON HYDROCHLORIDE
     Dosage: 8 MG, ORAL, EVERY 8 HOURS PRN
  18. MIRALAX [Concomitant]
     Active Substance: POLYETHYLENE GLYCOL 3350
     Dosage: 17 G, ORAL, 2 X DAILY PRN
  19. PROMETRIUM [Concomitant]
     Active Substance: PROGESTERONE
     Dosage: 100 MG, ORAL, 1X DAILY
  20. PROBIOTICS NOS [Concomitant]
     Active Substance: PROBIOTICS NOS
     Dosage: 1 CAP, 1 X DAILY (AM)
  21. PROCHLORPERAZINE MALEATE [Concomitant]
     Active Substance: PROCHLORPERAZINE MALEATE
     Dosage: 10 MG, ORAL, EVERY 6 HOURS PRN
  22. SUDAFED [Concomitant]
     Active Substance: PSEUDOEPHEDRINE HYDROCHLORIDE
     Dosage: 30 MG, EVERY 6 HOURS PRN
  23. SANCUSO [Concomitant]
     Active Substance: GRANISETRON
     Dosage: 3.1 MG, TRANSDERMAL, EVERY 7 DAYS
  24. IMITREX [Concomitant]
     Active Substance: SUMATRIPTAN SUCCINATE
     Dosage: 50 MG, ORAL, 1 X DAILY PRN (MAY REPEAT IN 2 HOURS IF SYMPTOMS NOT IMPROVED)
  25. VITAMIN B12 [Concomitant]
     Active Substance: CYANOCOBALAMIN
     Dosage: 1X DAILY

REACTIONS (6)
  - Cough [Unknown]
  - Pyrexia [Recovering/Resolving]
  - Leukocytosis [Unknown]
  - Blood lactic acid increased [Unknown]
  - Hypotension [Unknown]
  - Off label use [Unknown]

NARRATIVE: CASE EVENT DATE: 20250507
